FAERS Safety Report 4543343-3 (Version None)
Quarter: 2005Q1

REPORT INFORMATION
  Report Type: 
  Country: None (occurrence: None)
  Receive Date: 20050103
  Receipt Date: 20040130
  Transmission Date: 20050727
  Serious: Yes (Hospitalization)
  Sender: FDA-Public Use
  Company Number: FR-ROCHE-357926

PATIENT
  Age: 66 Year
  Sex: Male
  Weight: 76.5 kg

DRUGS (5)
  1. PEG-INTERFERON ALFA 2A (RO 25-8310) [Suspect]
     Route: 058
     Dates: start: 20030403
  2. PEG-INTERFERON ALFA 2A (RO 25-8310) [Suspect]
     Route: 058
     Dates: end: 20040331
  3. RIBAVIRIN [Suspect]
     Route: 048
     Dates: start: 20030403
  4. RIBAVIRIN [Suspect]
     Route: 048
     Dates: start: 20031215
  5. PROGRAF [Concomitant]
     Route: 048
     Dates: start: 20040107

REACTIONS (5)
  - ANAEMIA [None]
  - HAEMOPHILUS INFECTION [None]
  - HAEMOPTYSIS [None]
  - LUNG DISORDER [None]
  - PYREXIA [None]
